FAERS Safety Report 10279655 (Version 2)
Quarter: 2014Q3

REPORT INFORMATION
  Report Type: Spontaneous
  Country: JP (occurrence: JP)
  Receive Date: 20140707
  Receipt Date: 20140724
  Transmission Date: 20150326
  Serious: Yes (Hospitalization, Other)
  Sender: FDA-Public Use
  Company Number: JP-ASTELLAS-2014JP012665

PATIENT
  Age: 20 Month
  Sex: Female
  Weight: 12 kg

DRUGS (2)
  1. PROGRAF [Suspect]
     Active Substance: TACROLIMUS\TACROLIMUS ANHYDROUS
     Indication: IMMUNOSUPPRESSANT DRUG THERAPY
     Dosage: 0.8 MG, ONCE DAILY
     Route: 065
  2. PREDNISOLONE. [Suspect]
     Active Substance: PREDNISOLONE
     Indication: IMMUNOSUPPRESSANT DRUG THERAPY
     Route: 065

REACTIONS (5)
  - Pneumomediastinum [Recovering/Resolving]
  - Pertussis [Recovering/Resolving]
  - Subcutaneous emphysema [Recovering/Resolving]
  - Chronic graft versus host disease [Unknown]
  - Drug ineffective [Unknown]
